FAERS Safety Report 21485866 (Version 1)
Quarter: 2022Q4

REPORT INFORMATION
  Report Type: Spontaneous
  Country: AT (occurrence: AT)
  Receive Date: 20221020
  Receipt Date: 20221020
  Transmission Date: 20230113
  Serious: Yes (Other)
  Sender: FDA-Public Use
  Company Number: AT-SLATE RUN PHARMACEUTICALS-22AT001378

PATIENT

DRUGS (2)
  1. IBUPROFEN [Interacting]
     Active Substance: IBUPROFEN
     Indication: Headache
     Dosage: 200 MILLIGRAM, SINGLE
  2. ATORVASTATIN [Interacting]
     Active Substance: ATORVASTATIN
     Indication: Product used for unknown indication
     Dosage: 20 MILLIGRAM, QD

REACTIONS (5)
  - Altered state of consciousness [Recovered/Resolved]
  - Tunnel vision [Recovered/Resolved]
  - Mood altered [Unknown]
  - Magnetic resonance imaging head abnormal [Unknown]
  - Drug interaction [Unknown]
